FAERS Safety Report 19948204 (Version 2)
Quarter: 2022Q1

REPORT INFORMATION
  Report Type: Other
  Country: US (occurrence: None)
  Receive Date: 20211013
  Receipt Date: 20220207
  Transmission Date: 20220423
  Serious: Yes (Death)
  Sender: FDA-Public Use
  Company Number: US-ROCHE-2931709

PATIENT
  Sex: Male
  Weight: 146 kg

DRUGS (4)
  1. RITUXAN [Suspect]
     Active Substance: RITUXIMAB
     Indication: Pemphigoid
     Dosage: EVERY WEEK FOR 8 WEEKS. VIAL
     Route: 042
  2. RITUXAN [Suspect]
     Active Substance: RITUXIMAB
     Dosage: EVERY WEEK FOR 8 WEEKS. VIAL
     Route: 042
  3. ACETAMINOPHEN [Concomitant]
     Active Substance: ACETAMINOPHEN
     Route: 048
  4. DIPHENHYDRAMINE [Concomitant]
     Active Substance: DIPHENHYDRAMINE
     Route: 048

REACTIONS (2)
  - Death [Fatal]
  - Off label use [Unknown]
